FAERS Safety Report 15599347 (Version 1)
Quarter: 2018Q4

REPORT INFORMATION
  Report Type: Spontaneous
  Country: JP (occurrence: JP)
  Receive Date: 20181108
  Receipt Date: 20181108
  Transmission Date: 20190205
  Serious: Yes (Death, Life-Threatening, Hospitalization, Disabling, Other)
  Sender: FDA-Public Use
  Company Number: JP-009507513-1810JPN002798J

PATIENT
  Age: 59 Year
  Sex: Male
  Weight: 60 kg

DRUGS (19)
  1. CORTRIL [Concomitant]
     Active Substance: HYDROCORTISONE
     Indication: ADRENAL INSUFFICIENCY
     Dosage: UNK, BID
     Route: 048
     Dates: start: 20180412
  2. FLAVITAN [Concomitant]
     Active Substance: FLAVIN ADENINE DINUCLEOTIDE
     Indication: ABNORMAL SENSATION IN EYE
     Dosage: UNK, PRN
     Route: 047
     Dates: start: 20170803
  3. ACTONEL [Concomitant]
     Active Substance: RISEDRONATE SODIUM
     Indication: OSTEOPOROSIS PROPHYLAXIS
     Dosage: UNK UNK, QW
     Route: 048
     Dates: start: 20180601
  4. KEYTRUDA [Suspect]
     Active Substance: PEMBROLIZUMAB
     Indication: NON-SMALL CELL LUNG CANCER
     Dosage: 200 MILLIGRAM, QW
     Route: 041
     Dates: start: 20180419, end: 20180622
  5. FEXOFENADINE HYDROCHLORIDE. [Concomitant]
     Active Substance: FEXOFENADINE HYDROCHLORIDE
     Indication: RHINORRHOEA
     Dosage: 60 MILLIGRAM, BID
     Route: 048
     Dates: start: 20171109
  6. NEXIUM [Concomitant]
     Active Substance: ESOMEPRAZOLE MAGNESIUM
     Indication: PROPHYLAXIS
     Dosage: 20 MILLIGRAM, QD
     Route: 048
     Dates: start: 20170808
  7. WHITE PETROLATUM [Concomitant]
     Active Substance: PETROLATUM
     Indication: DECUBITUS ULCER
     Dosage: UNK, PRN
     Route: 003
     Dates: start: 20180501
  8. MAGNESIUM OXIDE. [Concomitant]
     Active Substance: MAGNESIUM OXIDE
     Indication: CONSTIPATION
     Dosage: UNK UNK, TID
     Route: 048
     Dates: start: 20180327
  9. FEXOFENADINE HYDROCHLORIDE. [Concomitant]
     Active Substance: FEXOFENADINE HYDROCHLORIDE
     Indication: NASAL CONGESTION
  10. GOSHAJINKIGAN [Concomitant]
     Active Substance: HERBALS
     Indication: HYPOAESTHESIA
     Dosage: 1 DOSAGE FORM, TID
     Route: 048
     Dates: start: 20180330
  11. HYALEIN [Concomitant]
     Active Substance: HYALURONATE SODIUM
     Indication: ABNORMAL SENSATION IN EYE
     Dosage: UNK, QID
     Route: 047
     Dates: start: 20170803
  12. SENNOSIDE [Concomitant]
     Active Substance: SENNOSIDES
     Indication: CONSTIPATION
     Dosage: UNK, PRN
     Route: 048
     Dates: start: 20170827
  13. CODEINE PHOSPHATE HYDRATE [Concomitant]
     Active Substance: CODEINE PHOSPHATE
     Indication: COUGH
     Dosage: 2 GRAM, TID
     Route: 048
     Dates: start: 20170812
  14. MIYA-BM [Concomitant]
     Active Substance: CLOSTRIDIUM BUTYRICUM SPORES STRAIN M-55
     Indication: DIARRHOEA
     Dosage: 1 GRAM, TID
     Route: 048
     Dates: start: 20170814
  15. CALONAL [Concomitant]
     Active Substance: ACETAMINOPHEN
     Indication: PYREXIA
     Dosage: 500 MILLIGRAM, QID
     Route: 048
     Dates: start: 20180403
  16. DESYREL [Concomitant]
     Active Substance: TRAZODONE HYDROCHLORIDE
     Indication: INSOMNIA
     Dosage: 50 MILLIGRAM, QD
     Route: 048
     Dates: start: 20180407
  17. KETOPROFEN. [Concomitant]
     Active Substance: KETOPROFEN
     Indication: BACK PAIN
     Dosage: UNK
     Dates: start: 20170803
  18. FLORINEF ACETATE [Concomitant]
     Active Substance: FLUDROCORTISONE ACETATE
     Indication: ADRENAL INSUFFICIENCY
     Dosage: .05 MILLIGRAM, QD
     Route: 048
     Dates: start: 20180601
  19. OPSO [Concomitant]
     Active Substance: MORPHINE HYDROCHLORIDE
     Indication: DYSPNOEA
     Dosage: 5 MILLIGRAM, PRN
     Route: 048
     Dates: start: 20170822

REACTIONS (6)
  - Corneal disorder [Unknown]
  - Arthralgia [Unknown]
  - Diarrhoea [Unknown]
  - Psoriatic arthropathy [Not Recovered/Not Resolved]
  - Pustular psoriasis [Not Recovered/Not Resolved]
  - Completed suicide [Fatal]

NARRATIVE: CASE EVENT DATE: 2018
